FAERS Safety Report 6119669-9 (Version None)
Quarter: 2009Q1

REPORT INFORMATION
  Report Type: 
  Country: None (occurrence: None)
  Receive Date: 20090311
  Receipt Date: 20090226
  Transmission Date: 20090719
  Serious: Yes (Hospitalization)
  Sender: FDA-Public Use
  Company Number: DSA_33294_2009

PATIENT
  Sex: Male

DRUGS (8)
  1. LORAZEPAM [Suspect]
     Indication: DRUG USE FOR UNKNOWN INDICATION
     Dosage: (1 MG, ORAL), (1 MG, SUBLINGUAL), (1 MG, SUBLINGUAL)
     Route: 048
     Dates: start: 20081109, end: 20081109
  2. LORAZEPAM [Suspect]
     Indication: DRUG USE FOR UNKNOWN INDICATION
     Dosage: (1 MG, ORAL), (1 MG, SUBLINGUAL), (1 MG, SUBLINGUAL)
     Route: 048
     Dates: start: 20081110, end: 20081112
  3. LORAZEPAM [Suspect]
     Indication: DRUG USE FOR UNKNOWN INDICATION
     Dosage: (1 MG, ORAL), (1 MG, SUBLINGUAL), (1 MG, SUBLINGUAL)
     Route: 048
     Dates: start: 20081116, end: 20090119
  4. AKINETON [Suspect]
     Indication: DRUG USE FOR UNKNOWN INDICATION
     Dosage: (4 MG QD, ORAL), (4 MG QD ORAL), (4 MG QD ORAL)
     Route: 048
     Dates: start: 20081110, end: 20081112
  5. AKINETON [Suspect]
     Indication: DRUG USE FOR UNKNOWN INDICATION
     Dosage: (4 MG QD, ORAL), (4 MG QD ORAL), (4 MG QD ORAL)
     Route: 048
     Dates: start: 20081116, end: 20081207
  6. AKINETON [Suspect]
     Indication: DRUG USE FOR UNKNOWN INDICATION
     Dosage: (4 MG QD, ORAL), (4 MG QD ORAL), (4 MG QD ORAL)
     Route: 048
     Dates: start: 20081231, end: 20090109
  7. HALDOL [Suspect]
     Indication: SCHIZOPHRENIA
     Dosage: (SINGLE DOSE DIFFERENT ORAL)
     Route: 048
     Dates: start: 20081107, end: 20090106
  8. LEPONEX [Concomitant]

REACTIONS (1)
  - HEPATITIS ACUTE [None]
